FAERS Safety Report 18619885 (Version 6)
Quarter: 2025Q1

REPORT INFORMATION
  Report Type: Report from Study
  Country: US (occurrence: US)
  Receive Date: 20201215
  Receipt Date: 20250121
  Transmission Date: 20250409
  Serious: Yes (Other)
  Sender: TAKEDA
  Company Number: US-TAKEDA-US202004935

PATIENT
  Sex: Female

DRUGS (3)
  1. HUMAN IMMUNOGLOBULIN G [Suspect]
     Active Substance: HUMAN IMMUNOGLOBULIN G
     Indication: Primary immunodeficiency syndrome
  2. HUMAN IMMUNOGLOBULIN G [Suspect]
     Active Substance: HUMAN IMMUNOGLOBULIN G
     Dosage: UNK UNK, MONTHLY
  3. HUMAN IMMUNOGLOBULIN G [Suspect]
     Active Substance: HUMAN IMMUNOGLOBULIN G

REACTIONS (17)
  - Breast cancer stage IV [Unknown]
  - Pneumonia [Unknown]
  - Malignant neoplasm progression [Unknown]
  - Fatigue [Unknown]
  - Nasopharyngitis [Unknown]
  - Chest pain [Unknown]
  - Dyspnoea [Unknown]
  - Rhinorrhoea [Unknown]
  - Poor venous access [Unknown]
  - Limb discomfort [Unknown]
  - COVID-19 [Unknown]
  - Inappropriate schedule of product administration [Unknown]
  - Product use issue [Unknown]
  - Pain [Unknown]
  - Malaise [Unknown]
  - Influenza like illness [Unknown]
  - Headache [Unknown]
